FAERS Safety Report 11275573 (Version 1)
Quarter: 2015Q3

REPORT INFORMATION
  Report Type: Spontaneous
  Country: US (occurrence: None)
  Receive Date: 20150715
  Receipt Date: 20150715
  Transmission Date: 20151125
  Serious: Yes (Other)
  Sender: FDA-Public Use
  Company Number: None

PATIENT
  Age: 43 Year
  Sex: Female
  Weight: 70.31 kg

DRUGS (2)
  1. XOLAIR [Suspect]
     Active Substance: OMALIZUMAB
     Indication: ASTHMA
     Route: 058
     Dates: start: 20150506
  2. XOLAIR [Suspect]
     Active Substance: OMALIZUMAB
     Indication: BLOOD IMMUNOGLOBULIN E INCREASED

REACTIONS (3)
  - Tendon disorder [None]
  - Deep vein thrombosis [None]
  - Local swelling [None]

NARRATIVE: CASE EVENT DATE: 20150617
